FAERS Safety Report 10995522 (Version 2)
Quarter: 2016Q2

REPORT INFORMATION
  Report Type: Report from Study
  Country: US (occurrence: US)
  Receive Date: 20150407
  Receipt Date: 20160609
  Transmission Date: 20160815
  Serious: Yes (Hospitalization, Disabling, Other)
  Sender: FDA-Public Use
  Company Number: US-ASTRAZENECA-2015SE17939

PATIENT
  Age: 22222 Day
  Sex: Female

DRUGS (2)
  1. LYNPARZA [Suspect]
     Active Substance: OLAPARIB
     Indication: OVARIAN CANCER
     Route: 048
     Dates: start: 20150203
  2. LYNPARZA [Suspect]
     Active Substance: OLAPARIB
     Indication: BRCA1 GENE MUTATION
     Route: 048
     Dates: start: 20150203

REACTIONS (6)
  - Swollen tongue [Unknown]
  - Nausea [Not Recovered/Not Resolved]
  - Vomiting [Recovered/Resolved]
  - Influenza like illness [Recovered/Resolved]
  - Angioedema [Recovered/Resolved]
  - Hypersensitivity [Recovering/Resolving]

NARRATIVE: CASE EVENT DATE: 20150302
